FAERS Safety Report 6099563-2 (Version None)
Quarter: 2009Q1

REPORT INFORMATION
  Report Type: 
  Country: None (occurrence: None)
  Receive Date: 20090226
  Receipt Date: 20090217
  Transmission Date: 20090719
  Serious: Yes (Other)
  Sender: FDA-Public Use
  Company Number: FR-GDP-09405530

PATIENT
  Sex: Female

DRUGS (1)
  1. EPIDUO [Suspect]
     Indication: ACNE
     Dosage: (1 DF QD TOPICAL)
     Route: 061
     Dates: start: 20090210, end: 20090210

REACTIONS (7)
  - APPLICATION SITE DISCOLOURATION [None]
  - APPLICATION SITE ECZEMA [None]
  - APPLICATION SITE OEDEMA [None]
  - DERMATITIS ALLERGIC [None]
  - DYSPHAGIA [None]
  - SPEECH DISORDER [None]
  - SWELLING FACE [None]
